FAERS Safety Report 12526900 (Version 2)
Quarter: 2016Q3

REPORT INFORMATION
  Report Type: Spontaneous
  Country: US (occurrence: US)
  Receive Date: 20160705
  Receipt Date: 20160802
  Transmission Date: 20161109
  Serious: No
  Sender: FDA-Public Use
  Company Number: US-PFIZER INC-2016330158

PATIENT
  Age: 46 Year
  Sex: Female
  Weight: 67.57 kg

DRUGS (1)
  1. GABAPENTIN. [Suspect]
     Active Substance: GABAPENTIN
     Dosage: 900 MG, DAILY, 300 IN THE EVENING, 600MG BEFORE BED
     Route: 048

REACTIONS (1)
  - Somnolence [Unknown]
